FAERS Safety Report 12376985 (Version 1)
Quarter: 2016Q2

REPORT INFORMATION
  Report Type: Report from Study
  Country: US (occurrence: US)
  Receive Date: 20160517
  Receipt Date: 20160517
  Transmission Date: 20160815
  Serious: No
  Sender: FDA-Public Use
  Company Number: US-MALLINCKRODT-T201504090

PATIENT
  Sex: Male
  Weight: 111 kg

DRUGS (4)
  1. TORSEMIDE. [Concomitant]
     Active Substance: TORSEMIDE
     Dosage: 100 MG
  2. TORSEMIDE. [Concomitant]
     Active Substance: TORSEMIDE
     Indication: PERIPHERAL SWELLING
     Dosage: 20 MG
  3. ATORVASTATIN [Concomitant]
     Active Substance: ATORVASTATIN
  4. REPOSITORY CORTICOTROPIN INJECTION [Suspect]
     Active Substance: CORTICOTROPIN
     Indication: GLOMERULONEPHRITIS MEMBRANOUS
     Dosage: 80 UNITS TWICE WEEKLY
     Route: 065
     Dates: start: 2015

REACTIONS (4)
  - Peripheral swelling [Not Recovered/Not Resolved]
  - Paraesthesia [Not Recovered/Not Resolved]
  - Unevaluable event [Not Recovered/Not Resolved]
  - Burning sensation [Not Recovered/Not Resolved]

NARRATIVE: CASE EVENT DATE: 2015
